FAERS Safety Report 6903355-9 (Version None)
Quarter: 2010Q3

REPORT INFORMATION
  Report Type: 
  Country: None (occurrence: None)
  Receive Date: 20100803
  Receipt Date: 20080922
  Transmission Date: 20110219
  Serious: No
  Sender: FDA-Public Use
  Company Number: US-PFIZER INC-2008071924

PATIENT
  Sex: Female
  Weight: 68.04 kg

DRUGS (9)
  1. LYRICA [Suspect]
     Indication: FIBROMYALGIA
     Route: 048
     Dates: start: 20080808
  2. VICODIN [Concomitant]
  3. SOMA [Concomitant]
  4. PRILOSEC [Concomitant]
  5. PROMETHAZINE [Concomitant]
     Indication: NAUSEA
     Dosage: AS NEEDED
  6. NAPROXEN [Concomitant]
     Dosage: AS NEEDED
  7. KLONOPIN [Concomitant]
     Indication: SLEEP DISORDER
  8. ELAVIL [Concomitant]
     Indication: SLEEP DISORDER
  9. WELLBUTRIN [Concomitant]
     Indication: SMOKING CESSATION THERAPY

REACTIONS (7)
  - BACK PAIN [None]
  - DRY MOUTH [None]
  - MYALGIA [None]
  - NAUSEA [None]
  - OEDEMA PERIPHERAL [None]
  - PYREXIA [None]
  - WEIGHT INCREASED [None]
